FAERS Safety Report 4288448-X (Version None)
Quarter: 2004Q1

REPORT INFORMATION
  Report Type: 
  Country: None (occurrence: None)
  Receive Date: 20040204
  Receipt Date: 20031107
  Transmission Date: 20041129
  Serious: Yes (Life-Threatening, Hospitalization)
  Sender: FDA-Public Use
  Company Number: 2003S1000390

PATIENT
  Age: 50 Year
  Sex: Male

DRUGS (19)
  1. DOXORUBICIN HCL [Suspect]
     Indication: HEPATIC NEOPLASM MALIGNANT
     Dosage: 60 MG/M^2; EVERY THREE WEEKS; INTRAVENOUS
     Route: 042
     Dates: start: 20030506, end: 20031028
  2. MILK OF MAGNESIA TAB [Concomitant]
  3. SENNA [Concomitant]
  4. COLACE [Concomitant]
  5. ZESTRIL [Concomitant]
  6. MORPHINE [Concomitant]
  7. ASPIRIN [Concomitant]
  8. MULTI-VITAMINS [Concomitant]
  9. ZOFRAN [Concomitant]
  10. DECADRON [Concomitant]
  11. LACTULOSE [Concomitant]
  12. MAALOX [Concomitant]
  13. COMPAZINE [Concomitant]
  14. LASIX [Concomitant]
  15. SPIRONOLACTONE [Concomitant]
  16. ZOLOFT [Concomitant]
  17. MS CONTIN [Concomitant]
  18. DINETAB [Concomitant]
  19. DOXORUBICIN HCL [Suspect]

REACTIONS (6)
  - CHILLS [None]
  - DIARRHOEA [None]
  - FEBRILE NEUTROPENIA [None]
  - PLATELET COUNT DECREASED [None]
  - SEPSIS [None]
  - WHITE BLOOD CELL COUNT DECREASED [None]
